FAERS Safety Report 5127245-X (Version None)
Quarter: 2006Q4

REPORT INFORMATION
  Report Type: 
  Country: None (occurrence: None)
  Receive Date: 20061010
  Receipt Date: 20060925
  Transmission Date: 20070319
  Serious: No
  Sender: FDA-Public Use
  Company Number: 2006RR-03890

PATIENT
  Age: 39 Year
  Sex: Female

DRUGS (3)
  1. ACICLOVIR 200 MG TABLETS (ACYCLOVIR [Suspect]
     Indication: HERPES SIMPLEX
     Dosage: 200 MG ORAL
     Route: 048
     Dates: start: 19090724, end: 19090728
  2. CO-DRYDAMOL [Concomitant]
  3. ACETAMINOPHEN [Concomitant]

REACTIONS (3)
  - HALLUCINATION, AUDITORY [None]
  - NIGHTMARE [None]
  - SOMNOLENCE [None]
